FAERS Safety Report 18166340 (Version 1)
Quarter: 2020Q3

REPORT INFORMATION
  Report Type: Report from Study
  Country: RU (occurrence: RU)
  Receive Date: 20200819
  Receipt Date: 20200819
  Transmission Date: 20201103
  Serious: Yes (Other)
  Sender: FDA-Public Use
  Company Number: RU-AUROBINDO-AUR-APL-2020-040268

PATIENT
  Sex: Female

DRUGS (6)
  1. PROGESTERONE. [Suspect]
     Active Substance: PROGESTERONE
     Dosage: FULL LOADING DOSE 200 MILLIGRAM, 3 TIMES A DAY (600 MG/DAY)
     Route: 067
  2. PROGESTERONE. [Suspect]
     Active Substance: PROGESTERONE
     Indication: PRODUCT USED FOR UNKNOWN INDICATION
     Dosage: 400 MILLIGRAM
     Route: 067
  3. AMOXICILLIN+CLAVULANIC ACID [Suspect]
     Active Substance: AMOXICILLIN\CLAVULANIC ACID
     Indication: PRODUCT USED FOR UNKNOWN INDICATION
     Dosage: 1 GRAM, TWO TIMES A DAY
     Route: 048
  4. PROGESTERONE. [Suspect]
     Active Substance: PROGESTERONE
     Dosage: 200 MILLIGRAM, ONCE A DAY
     Route: 067
  5. INDOMETACIN [Suspect]
     Active Substance: INDOMETHACIN
     Indication: PRODUCT USED FOR UNKNOWN INDICATION
     Dosage: 100 MILLIGRAM, TWO TIMES A DAY,DAYS 13
     Route: 054
  6. INDOMETACIN [Suspect]
     Active Substance: INDOMETHACIN
     Dosage: 100 MILLIGRAM, ONCE A DAY DAYS 47
     Route: 054

REACTIONS (3)
  - Endometritis decidual [Unknown]
  - Exposure during pregnancy [Unknown]
  - Premature rupture of membranes [Unknown]
